FAERS Safety Report 20291316 (Version 1)
Quarter: 2022Q1

REPORT INFORMATION
  Report Type: Spontaneous
  Country: NL (occurrence: NL)
  Receive Date: 20220104
  Receipt Date: 20220104
  Transmission Date: 20220423
  Serious: Yes (Life-Threatening, Other)
  Sender: FDA-Public Use
  Company Number: None

PATIENT
  Age: 79 Year
  Sex: Female
  Weight: 51 kg

DRUGS (5)
  1. FENTANYL [Interacting]
     Active Substance: FENTANYL
     Indication: Product used for unknown indication
     Dosage: 100 MICROGRAM (PLASTER, 100 ?G (MICROGRAMS) PER HOUR FOR THE NIGHT 1)
  2. FENTANYL [Interacting]
     Active Substance: FENTANYL
     Indication: Product used for unknown indication
     Dosage: 25 MICROGRAM (PLASTER, 25 ?G (MICROGRAMS) PER HOUR)
  3. GABAPENTIN [Interacting]
     Active Substance: GABAPENTIN
     Indication: Pain in extremity
     Dosage: 300 MILLIGRAMS, QD (FOR THE NIGHT 1)
     Dates: start: 20211126, end: 20211201
  4. CLONAZEPAM [Concomitant]
     Active Substance: CLONAZEPAM
     Dosage: (TABLET, 0,5 MG (MILLIGRAM))
  5. TEMAZEPAM [Concomitant]
     Active Substance: TEMAZEPAM
     Dosage: CAPSULE, 20 MG (MILLIGRAM)

REACTIONS (4)
  - Miosis [Recovered/Resolved]
  - Respiratory depression [Recovered/Resolved]
  - Drug interaction [Recovered/Resolved]
  - Toxicity to various agents [Recovered/Resolved]

NARRATIVE: CASE EVENT DATE: 20211201
